FAERS Safety Report 5790381-9 (Version None)
Quarter: 2008Q2

REPORT INFORMATION
  Report Type: 
  Country: None (occurrence: None)
  Receive Date: 20080618
  Receipt Date: 20080411
  Transmission Date: 20081010
  Serious: Yes (Other)
  Sender: FDA-Public Use
  Company Number: 200810550US

PATIENT
  Age: 54 Year
  Sex: Female

DRUGS (6)
  1. LANTUS [Suspect]
     Indication: TYPE 1 DIABETES MELLITUS
     Dosage: 21 U HS
     Dates: start: 20070101, end: 20080101
  2. LANTUS [Suspect]
     Indication: TYPE 1 DIABETES MELLITUS
     Dosage: 17 U HS
     Dates: start: 20080101
  3. CARBAMAZEPINE (CARBATROL) [Concomitant]
  4. ESTROGENS CONJUGATED (PREMARIN /00073001/) [Concomitant]
  5. SYNTHROID [Concomitant]
  6. PRAVASTATIN [Concomitant]

REACTIONS (2)
  - BLOOD GLUCOSE DECREASED [None]
  - HYPOGLYCAEMIC SEIZURE [None]
